FAERS Safety Report 8919324 (Version 1)
Quarter: 2012Q4

REPORT INFORMATION
  Report Type: 
  Country: US (occurrence: US)
  Receive Date: 20121121
  Receipt Date: 20121121
  Transmission Date: 20130627
  Serious: Yes (Other)
  Sender: FDA-Public Use
  Company Number: US-BAYER-2012-119522

PATIENT
  Age: 43 Year
  Sex: Female

DRUGS (3)
  1. YASMIN [Suspect]
  2. OCELLA [Suspect]
  3. ZARAH [Suspect]

REACTIONS (1)
  - Cerebrovascular accident [None]
